FAERS Safety Report 9138347 (Version 1)
Quarter: 2013Q1

REPORT INFORMATION
  Report Type: Spontaneous
  Country: PL (occurrence: None)
  Receive Date: 20130228
  Receipt Date: 20130228
  Transmission Date: 20140127
  Serious: Yes (Death, Other)
  Sender: FDA-Public Use
  Company Number: 7195411

PATIENT
  Age: 26 Year
  Sex: Female

DRUGS (1)
  1. HYDROXOCOBALAMIN [Suspect]
     Indication: TOXICITY TO VARIOUS AGENTS
     Dosage: (2 DF)  (NOT OTHERWISE SPECIFIED))
     Route: 042
     Dates: start: 201102

REACTIONS (6)
  - Treatment failure [None]
  - Chromaturia [None]
  - Tachycardia [None]
  - Circulatory collapse [None]
  - Electrocardiogram QRS complex shortened [None]
  - Brain death [None]
